FAERS Safety Report 23455346 (Version 4)
Quarter: 2025Q2

REPORT INFORMATION
  Report Type: Spontaneous
  Country: FI (occurrence: FI)
  Receive Date: 20240130
  Receipt Date: 20250409
  Transmission Date: 20250716
  Serious: Yes (Hospitalization, Other)
  Sender: ASTELLAS
  Company Number: FI-ASTELLAS-2024US002563

PATIENT
  Age: 75 Year
  Sex: Female
  Weight: 105 kg

DRUGS (3)
  1. PADCEV [Suspect]
     Active Substance: ENFORTUMAB VEDOTIN-EJFV
     Indication: Product used for unknown indication
     Route: 042
     Dates: start: 20240116
  2. PADCEV [Suspect]
     Active Substance: ENFORTUMAB VEDOTIN-EJFV
     Route: 042
     Dates: start: 20240201, end: 20240307
  3. PADCEV [Suspect]
     Active Substance: ENFORTUMAB VEDOTIN-EJFV
     Route: 042
     Dates: start: 20240328, end: 20250122

REACTIONS (19)
  - Feeling hot [Unknown]
  - Oral disorder [Unknown]
  - Tongue rough [Unknown]
  - Pyrexia [Recovered/Resolved]
  - Pruritus [Unknown]
  - Ageusia [Unknown]
  - Rash [Recovered/Resolved]
  - Dermatitis bullous [Unknown]
  - Neutropenia [Unknown]
  - Asthenia [Unknown]
  - Leukocytosis [Unknown]
  - Thrombocytosis [Unknown]
  - Thyroxine increased [Unknown]
  - Blood alkaline phosphatase increased [Unknown]
  - Dermatitis atopic [Unknown]
  - Rash [Recovering/Resolving]
  - Rash pruritic [Recovering/Resolving]
  - Hyponatraemia [Unknown]
  - Diarrhoea [Recovered/Resolved]

NARRATIVE: CASE EVENT DATE: 20240101
